FAERS Safety Report 6034990-0 (Version None)
Quarter: 2009Q1

REPORT INFORMATION
  Report Type: 
  Country: None (occurrence: None)
  Receive Date: 20090109
  Receipt Date: 20090109
  Transmission Date: 20090719
  Serious: No
  Sender: FDA-Public Use
  Company Number: None

PATIENT
  Age: 2 Year
  Sex: Male
  Weight: 14.5151 kg

DRUGS (2)
  1. SINGULAIR [Suspect]
     Indication: ABNORMAL BEHAVIOUR
     Dosage: 1X/DAY PO
     Route: 048
     Dates: start: 20081001, end: 20081031
  2. SINGULAIR [Suspect]
     Indication: APPETITE DISORDER
     Dosage: 1X/DAY PO
     Route: 048
     Dates: start: 20081001, end: 20081031

REACTIONS (5)
  - CRYING [None]
  - DIET REFUSAL [None]
  - MOOD ALTERED [None]
  - NIGHTMARE [None]
  - SCREAMING [None]
